FAERS Safety Report 19993513 (Version 1)
Quarter: 2021Q4

REPORT INFORMATION
  Report Type: Spontaneous
  Country: GB (occurrence: GB)
  Receive Date: 20211025
  Receipt Date: 20211025
  Transmission Date: 20220304
  Serious: Yes (Other)
  Sender: FDA-Public Use
  Company Number: None

PATIENT
  Age: 57 Year
  Sex: Female

DRUGS (13)
  1. ARIPIPRAZOLE [Suspect]
     Active Substance: ARIPIPRAZOLE
     Indication: Delusional disorder, unspecified type
     Dosage: 15MG
     Route: 048
     Dates: start: 2017
  2. ARIPIPRAZOLE [Suspect]
     Active Substance: ARIPIPRAZOLE
     Route: 065
     Dates: start: 20210726, end: 20210909
  3. ASPIRIN [Concomitant]
     Active Substance: ASPIRIN
     Dosage: 75MG
  4. ATORVASTATIN [Concomitant]
     Active Substance: ATORVASTATIN
     Dosage: 50MG
  5. CETIRIZINE [Concomitant]
     Active Substance: CETIRIZINE HYDROCHLORIDE
     Dosage: 10MG
  6. ISOPROPYL MYRISTATE\PARAFFIN [Concomitant]
     Active Substance: ISOPROPYL MYRISTATE\PARAFFIN
  7. MICONAZOLE NITRATE [Concomitant]
     Active Substance: MICONAZOLE NITRATE
  8. ACETAMINOPHEN [Concomitant]
     Active Substance: ACETAMINOPHEN
  9. VITAMIN D3 [Concomitant]
     Active Substance: CHOLECALCIFEROL
  10. XYLOPROCT [Concomitant]
  11. BETAMETHASONE [Concomitant]
     Active Substance: BETAMETHASONE
     Indication: Fungal skin infection
  12. CLARITHROMYCIN [Concomitant]
     Active Substance: CLARITHROMYCIN
     Dosage: 500MG
  13. PENICILLIN V [Concomitant]
     Active Substance: PENICILLIN V
     Dosage: 500MG

REACTIONS (12)
  - Diabetes mellitus [Not Recovered/Not Resolved]
  - Partial seizures [Not Recovered/Not Resolved]
  - Seizure [Recovered/Resolved with Sequelae]
  - Cardiac disorder [Not Recovered/Not Resolved]
  - Cardiac murmur [Not Recovered/Not Resolved]
  - Pain in extremity [Not Recovered/Not Resolved]
  - Odynophagia [Not Recovered/Not Resolved]
  - Dizziness [Not Recovered/Not Resolved]
  - Candida infection [Not Recovered/Not Resolved]
  - Tongue biting [Not Recovered/Not Resolved]
  - Respiratory rate increased [Not Recovered/Not Resolved]
  - Vision blurred [Not Recovered/Not Resolved]

NARRATIVE: CASE EVENT DATE: 20191024
